APPROVED DRUG PRODUCT: CLARITHROMYCIN
Active Ingredient: CLARITHROMYCIN
Strength: 250MG
Dosage Form/Route: TABLET;ORAL
Application: A065178 | Product #002
Applicant: HIKMA PHARMACEUTICALS USA INC
Approved: May 25, 2004 | RLD: No | RS: No | Type: DISCN